FAERS Safety Report 7021360-1 (Version None)
Quarter: 2010Q3

REPORT INFORMATION
  Report Type: 
  Country: None (occurrence: None)
  Receive Date: 20100929
  Receipt Date: 20100920
  Transmission Date: 20110219
  Serious: No
  Sender: FDA-Public Use
  Company Number: US-PFIZER INC-2010119466

PATIENT
  Age: 85 Year
  Sex: Female

DRUGS (1)
  1. CLEOCIN [Suspect]
     Indication: VAGINAL INFECTION
     Dosage: UNK,DAILY,AT NIGHT
     Route: 067

REACTIONS (4)
  - ADMINISTRATION SITE PAIN [None]
  - BURNING SENSATION [None]
  - PRODUCT DOSAGE FORM ISSUE [None]
  - PRODUCT QUALITY ISSUE [None]
